FAERS Safety Report 4633951-3 (Version None)
Quarter: 2005Q2

REPORT INFORMATION
  Report Type: 
  Country: None (occurrence: None)
  Receive Date: 20050407
  Receipt Date: 20050323
  Transmission Date: 20051028
  Serious: Yes (Other)
  Sender: FDA-Public Use
  Company Number: 2005-BP-04876YA

PATIENT
  Age: 73 Year
  Sex: Male

DRUGS (1)
  1. HARNAL         (TAMSULOSIN) [Suspect]
     Indication: BENIGN PROSTATIC HYPERPLASIA
     Route: 048

REACTIONS (4)
  - AGGRESSION [None]
  - DELIRIUM [None]
  - EXCITABILITY [None]
  - MEMORY IMPAIRMENT [None]
